FAERS Safety Report 5190521-9 (Version None)
Quarter: 2006Q4

REPORT INFORMATION
  Report Type: 
  Country: None (occurrence: None)
  Receive Date: 20061222
  Receipt Date: 20061219
  Transmission Date: 20070319
  Serious: Yes (Hospitalization)
  Sender: FDA-Public Use
  Company Number: DE-GLAXOSMITHKLINE-D0051825A

PATIENT
  Age: 33 Year
  Sex: Female
  Weight: 163 kg

DRUGS (4)
  1. ARIXTRA [Suspect]
     Indication: WOUND EVISCERATION
     Dosage: 2.5MG TWICE PER DAY
     Route: 058
     Dates: start: 20060602, end: 20060813
  2. CORTICOSTEROIDS (UNSPECIFIED) [Concomitant]
     Route: 065
  3. DICLO [Concomitant]
     Dosage: 75MG AS REQUIRED
     Route: 065
  4. MARCUMAR [Concomitant]
     Route: 065
     Dates: start: 19950501

REACTIONS (12)
  - ABDOMINAL PAIN [None]
  - ANAEMIA [None]
  - ANOREXIA [None]
  - BLOOD AMYLASE INCREASED [None]
  - DRUG TOXICITY [None]
  - HEPATIC ENZYME INCREASED [None]
  - HEPATOMEGALY [None]
  - LIPASE INCREASED [None]
  - NAUSEA [None]
  - PANCREATITIS [None]
  - PNEUMOTHORAX [None]
  - RETCHING [None]
